FAERS Safety Report 6209479-6 (Version None)
Quarter: 2009Q2

REPORT INFORMATION
  Report Type: 
  Country: None (occurrence: None)
  Receive Date: 20090601
  Receipt Date: 20081010
  Transmission Date: 20091009
  Serious: No
  Sender: FDA-Public Use
  Company Number: A0752261A

PATIENT
  Age: 2 Year
  Sex: Male
  Weight: 17.8 kg

DRUGS (2)
  1. AMOXICILLIN AND CLAVULANATE POTASSIUM [Suspect]
     Indication: EAR INFECTION
     Dosage: 6ML TWICE PER DAY
     Route: 048
     Dates: start: 20081003
  2. ALLEGRA [Concomitant]
     Dosage: .5TSP PER DAY

REACTIONS (4)
  - DIARRHOEA [None]
  - OVERDOSE [None]
  - PRODUCT QUALITY ISSUE [None]
  - WRONG TECHNIQUE IN DRUG USAGE PROCESS [None]
